FAERS Safety Report 8818482 (Version 4)
Quarter: 2012Q4

REPORT INFORMATION
  Report Type: 
  Country: US (occurrence: US)
  Receive Date: 20121001
  Receipt Date: 20121221
  Transmission Date: 20130627
  Serious: Yes (Other)
  Sender: FDA-Public Use
  Company Number: US-ELI_LILLY_AND_COMPANY-US201209008171

PATIENT
  Age: 91 Year
  Sex: Female

DRUGS (4)
  1. FORTEO [Suspect]
     Indication: OSTEOPOROSIS
     Dosage: 20 ug, qd
     Dates: start: 201203
  2. FORTEO [Suspect]
     Dosage: 20 ug, qd
     Dates: start: 201203
  3. PREDNISONE [Concomitant]
     Indication: TEMPORAL ARTERITIS
     Dosage: UNK
  4. METHOTREXATE [Concomitant]
     Indication: TEMPORAL ARTERITIS
     Dosage: UNK

REACTIONS (2)
  - Neoplasm malignant [Recovered/Resolved]
  - Basal cell carcinoma [Recovered/Resolved]
